FAERS Safety Report 18229803 (Version 4)
Quarter: 2020Q4

REPORT INFORMATION
  Report Type: Spontaneous
  Country: JP (occurrence: JP)
  Receive Date: 20200904
  Receipt Date: 20201021
  Transmission Date: 20210113
  Serious: Yes (Hospitalization, Other)
  Sender: FDA-Public Use
  Company Number: JP-BIOGEN-2020BI00918568

PATIENT
  Age: 43 Year
  Sex: Female
  Weight: 69 kg

DRUGS (13)
  1. TYSABRI [Suspect]
     Active Substance: NATALIZUMAB
     Indication: RELAPSING-REMITTING MULTIPLE SCLEROSIS
     Route: 050
     Dates: start: 20150416
  2. TERNELIN [Concomitant]
     Active Substance: TIZANIDINE
     Indication: RELAPSING-REMITTING MULTIPLE SCLEROSIS
     Route: 050
  3. LYRICA [Concomitant]
     Active Substance: PREGABALIN
     Indication: RELAPSING-REMITTING MULTIPLE SCLEROSIS
     Route: 050
  4. RIZE [Concomitant]
     Active Substance: CLOTIAZEPAM
     Route: 048
  5. CABPIRIN [Concomitant]
     Indication: MITRAL VALVE REPAIR
     Route: 048
  6. THYRADIN [Concomitant]
     Active Substance: LEVOTHYROXINE
     Indication: ENDOCRINE PROCEDURAL COMPLICATION
     Route: 048
  7. CRESTOR [Concomitant]
     Active Substance: ROSUVASTATIN CALCIUM
     Indication: DYSLIPIDAEMIA
     Route: 048
  8. JUVELA [Concomitant]
     Active Substance: .ALPHA.-TOCOPHEROL\RETINOL
     Route: 048
  9. SPIRONOLACTONE. [Concomitant]
     Active Substance: SPIRONOLACTONE
     Indication: MITRAL VALVE REPAIR
     Route: 048
  10. TYSABRI [Suspect]
     Active Substance: NATALIZUMAB
     Route: 050
  11. LASIX [Concomitant]
     Active Substance: FUROSEMIDE
     Indication: MITRAL VALVE REPAIR
     Route: 048
  12. RIVOTRIL [Concomitant]
     Active Substance: CLONAZEPAM
     Indication: RELAPSING-REMITTING MULTIPLE SCLEROSIS
     Route: 050
  13. ONEALFA [Concomitant]
     Active Substance: ALFACALCIDOL
     Route: 048

REACTIONS (4)
  - Prescribed underdose [Unknown]
  - Mitral valve incompetence [Recovered/Resolved]
  - Multiple sclerosis [Unknown]
  - Nasopharyngitis [Unknown]

NARRATIVE: CASE EVENT DATE: 202001
